FAERS Safety Report 8651554 (Version 2)
Quarter: 2012Q4

REPORT INFORMATION
  Report Type: Report from Study
  Country: US (occurrence: US)
  Receive Date: 20120706
  Receipt Date: 20121017
  Transmission Date: 20130627
  Serious: Yes (Death)
  Sender: FDA-Public Use
  Company Number: US-CELGENEUS-163-21880-12070162

PATIENT
  Age: 54 Year
  Sex: Male
  Weight: 89.7 kg

DRUGS (2)
  1. REVLIMID [Suspect]
     Indication: HEAD AND NECK CANCER METASTATIC
     Dosage: 25 Milligram
     Route: 048
     Dates: start: 20101208
  2. CETUXIMAB [Suspect]
     Indication: HEAD AND NECK CANCER METASTATIC
     Dosage: 1110 Milligram
     Route: 065
     Dates: start: 20110104, end: 201101

REACTIONS (1)
  - Death [Fatal]
